FAERS Safety Report 9173456 (Version 3)
Quarter: 2013Q2

REPORT INFORMATION
  Report Type: Spontaneous
  Country: PL (occurrence: None)
  Receive Date: 20130315
  Receipt Date: 20130514
  Transmission Date: 20140414
  Serious: Yes (Other)
  Sender: FDA-Public Use
  Company Number: 1627354

PATIENT
  Age: 71 Year
  Sex: Male
  Weight: 34.93 kg

DRUGS (2)
  1. OXALIPLATIN [Suspect]
     Indication: COLON CANCER
     Route: 042
     Dates: start: 20130118, end: 20130118
  2. FLUOROURACIL [Concomitant]

REACTIONS (2)
  - Laryngospasm [None]
  - Stridor [None]
